FAERS Safety Report 14665190 (Version 1)
Quarter: 2018Q1

REPORT INFORMATION
  Report Type: Spontaneous
  Country: GB (occurrence: GB)
  Receive Date: 20180321
  Receipt Date: 20180321
  Transmission Date: 20180509
  Serious: Yes (Other)
  Sender: FDA-Public Use
  Company Number: GB-TEVA-2018-GB-869596

PATIENT
  Age: 35 Year
  Sex: Female

DRUGS (2)
  1. OFLOXACIN. [Suspect]
     Active Substance: OFLOXACIN
     Indication: PELVIC INFLAMMATORY DISEASE
     Dosage: 400 MILLIGRAM DAILY;
     Route: 048
  2. METRONIDAZOLE. [Suspect]
     Active Substance: METRONIDAZOLE
     Indication: PELVIC INFECTION
     Dosage: 1200 MILLIGRAM DAILY;
     Route: 048

REACTIONS (12)
  - Flushing [Not Recovered/Not Resolved]
  - Neurological symptom [Not Recovered/Not Resolved]
  - Paraesthesia [Not Recovered/Not Resolved]
  - Palpitations [Recovering/Resolving]
  - Headache [Recovering/Resolving]
  - Anxiety [Recovering/Resolving]
  - Sleep terror [Recovering/Resolving]
  - Depressed mood [Recovering/Resolving]
  - Hypoaesthesia [Not Recovered/Not Resolved]
  - Dizziness [Recovering/Resolving]
  - Malaise [Recovering/Resolving]
  - Neck pain [Recovering/Resolving]
